FAERS Safety Report 4853161-4 (Version None)
Quarter: 2005Q4

REPORT INFORMATION
  Report Type: 
  Country: None (occurrence: None)
  Receive Date: 20051212
  Receipt Date: 20051205
  Transmission Date: 20060501
  Serious: Yes (Hospitalization)
  Sender: FDA-Public Use
  Company Number: 2005-12-0137

PATIENT
  Age: 54 Year
  Sex: Female

DRUGS (1)
  1. PEG-INTRON [Suspect]
     Dates: start: 20051001

REACTIONS (1)
  - DEHYDRATION [None]
